FAERS Safety Report 8701623 (Version 4)
Quarter: 2013Q2

REPORT INFORMATION
  Report Type: Spontaneous
  Country: US (occurrence: US)
  Receive Date: 20120803
  Receipt Date: 20130410
  Transmission Date: 20140414
  Serious: No
  Sender: FDA-Public Use
  Company Number: US-BIOGENIDEC-2012BI028133

PATIENT
  Age: 28 Year
  Sex: Female

DRUGS (1)
  1. TYSABRI [Suspect]
     Indication: MULTIPLE SCLEROSIS
     Route: 042
     Dates: start: 20120210, end: 201301

REACTIONS (5)
  - Iron deficiency anaemia [Not Recovered/Not Resolved]
  - Local swelling [Not Recovered/Not Resolved]
  - Menstruation irregular [Unknown]
  - Menorrhagia [Not Recovered/Not Resolved]
  - Menstrual disorder [Not Recovered/Not Resolved]
